FAERS Safety Report 14169264 (Version 5)
Quarter: 2018Q1

REPORT INFORMATION
  Report Type: Report from Study
  Country: CA (occurrence: CA)
  Receive Date: 20171108
  Receipt Date: 20180326
  Transmission Date: 20180508
  Serious: Yes (Other)
  Sender: FDA-Public Use
  Company Number: PHHY2015CA167148

PATIENT
  Age: 63 Year
  Sex: Female

DRUGS (4)
  1. SANDOSTATIN [Suspect]
     Active Substance: OCTREOTIDE ACETATE
     Indication: NEUROENDOCRINE TUMOUR
  2. SANDOSTATIN [Suspect]
     Active Substance: OCTREOTIDE ACETATE
     Indication: ANGIODYSPLASIA
     Dosage: 100 UG, BID
     Route: 058
     Dates: start: 20151207, end: 20151210
  3. SANDOSTATIN LAR DEPOT [Suspect]
     Active Substance: OCTREOTIDE ACETATE
     Indication: ANGIODYSPLASIA
     Dosage: 20 MG, QMO
     Route: 030
     Dates: start: 20160131
  4. SANDOSTATIN LAR DEPOT [Suspect]
     Active Substance: OCTREOTIDE ACETATE
     Indication: NEUROENDOCRINE TUMOUR

REACTIONS (26)
  - Angina pectoris [Unknown]
  - Tremor [Unknown]
  - Speech disorder [Unknown]
  - Insomnia [Unknown]
  - Blood pressure increased [Unknown]
  - Hyperglycaemia [Unknown]
  - Headache [Unknown]
  - Chest pain [Unknown]
  - Product use in unapproved indication [Unknown]
  - Anxiety [Unknown]
  - Dyspepsia [Unknown]
  - Body temperature decreased [Unknown]
  - Abdominal distension [Unknown]
  - Dizziness [Unknown]
  - Stress [Unknown]
  - Drug ineffective [Unknown]
  - Asthenia [Unknown]
  - Wrong technique in product usage process [Unknown]
  - Decreased appetite [Unknown]
  - Fatigue [Unknown]
  - Feeling abnormal [Unknown]
  - Abdominal pain [Unknown]
  - Dyspnoea [Unknown]
  - Discomfort [Unknown]
  - Blood pressure systolic increased [Unknown]
  - Blood pressure diastolic increased [Unknown]

NARRATIVE: CASE EVENT DATE: 2016
